FAERS Safety Report 21144927 (Version 5)
Quarter: 2022Q4

REPORT INFORMATION
  Report Type: Report from Study
  Country: CO (occurrence: CO)
  Receive Date: 20220728
  Receipt Date: 20221028
  Transmission Date: 20230113
  Serious: Yes (Hospitalization, Other)
  Sender: FDA-Public Use
  Company Number: CO-ABBVIE-22K-036-4384851-00

PATIENT
  Age: 57 Year
  Sex: Female
  Weight: 86 kg

DRUGS (4)
  1. ZEMPLAR [Suspect]
     Active Substance: PARICALCITOL
     Indication: Hyperparathyroidism secondary
     Dosage: POSTDIALYSIS
     Route: 042
     Dates: start: 20200902, end: 20220624
  2. Mircera? [Concomitant]
     Indication: Product used for unknown indication
     Dosage: NOT REPORTED
  3. IRON [Concomitant]
     Active Substance: IRON
     Indication: Anaemia
     Dosage: NOT REPORTED
     Dates: start: 202206
  4. IRON [Concomitant]
     Active Substance: IRON
     Indication: Anaemia
     Dosage: NOT REPORTED
     Dates: start: 202206

REACTIONS (41)
  - Anaemia [Not Recovered/Not Resolved]
  - Amnesia [Recovering/Resolving]
  - Corneal disorder [Not Recovered/Not Resolved]
  - Uterine neoplasm [Recovering/Resolving]
  - Visual impairment [Not Recovered/Not Resolved]
  - Dysstasia [Recovering/Resolving]
  - Paraesthesia [Recovering/Resolving]
  - Dyschezia [Recovering/Resolving]
  - Micturition frequency decreased [Recovering/Resolving]
  - Abdominal pain [Recovering/Resolving]
  - Immune system disorder [Recovering/Resolving]
  - Hypoaesthesia [Recovering/Resolving]
  - Muscular weakness [Not Recovered/Not Resolved]
  - Cerebral disorder [Not Recovered/Not Resolved]
  - Bone disorder [Not Recovered/Not Resolved]
  - Angina pectoris [Not Recovered/Not Resolved]
  - Headache [Not Recovered/Not Resolved]
  - Fall [Not Recovered/Not Resolved]
  - Swelling face [Not Recovered/Not Resolved]
  - Limb injury [Not Recovered/Not Resolved]
  - Gait disturbance [Not Recovered/Not Resolved]
  - Fatigue [Not Recovered/Not Resolved]
  - Agitation [Not Recovered/Not Resolved]
  - Dyspnoea [Not Recovered/Not Resolved]
  - Sleep disorder [Not Recovered/Not Resolved]
  - Haemorrhage [Not Recovered/Not Resolved]
  - Blood cholesterol abnormal [Not Recovered/Not Resolved]
  - Bone pain [Not Recovered/Not Resolved]
  - Pain in extremity [Not Recovered/Not Resolved]
  - Pain [Not Recovered/Not Resolved]
  - Choking sensation [Not Recovered/Not Resolved]
  - Face injury [Not Recovered/Not Resolved]
  - Limb injury [Not Recovered/Not Resolved]
  - Cardiac disorder [Not Recovered/Not Resolved]
  - Asphyxia [Not Recovered/Not Resolved]
  - Malaise [Not Recovered/Not Resolved]
  - Discouragement [Not Recovered/Not Resolved]
  - Dizziness [Not Recovered/Not Resolved]
  - Bedridden [Not Recovered/Not Resolved]
  - Illness [Not Recovered/Not Resolved]
  - Mobility decreased [Not Recovered/Not Resolved]

NARRATIVE: CASE EVENT DATE: 20210701
